FAERS Safety Report 5333584-X (Version None)
Quarter: 2007Q2

REPORT INFORMATION
  Report Type: 
  Country: None (occurrence: None)
  Receive Date: 20070308
  Receipt Date: 20061220
  Transmission Date: 20071010
  Serious: No
  Sender: FDA-Public Use
  Company Number: 2006-BP-12881BP

PATIENT
  Age: 79 Year
  Sex: Female

DRUGS (6)
  1. SPIRIVA [Suspect]
     Indication: CHRONIC OBSTRUCTIVE PULMONARY DISEASE
     Dosage: 18 MCG (18 MCG, 1 CAP DAILY), IH
     Route: 055
     Dates: start: 20061026, end: 20061105
  2. OXYGEN (OXYGEN) [Concomitant]
  3. PREDNISONE TAB [Concomitant]
  4. COMBIVENT [Concomitant]
  5. FORADIL [Concomitant]
  6. FLOVENT [Concomitant]

REACTIONS (5)
  - COUGH [None]
  - DYSPHONIA [None]
  - MALAISE [None]
  - PYREXIA [None]
  - THROAT TIGHTNESS [None]
